FAERS Safety Report 26162702 (Version 1)
Quarter: 2025Q4

REPORT INFORMATION
  Report Type: Spontaneous
  Country: US (occurrence: None)
  Receive Date: 20251215
  Receipt Date: 20251215
  Transmission Date: 20260118
  Serious: Yes (Disabling)
  Sender: FDA-CTU
  Company Number: None

PATIENT
  Age: 35 Year
  Sex: Female
  Weight: 50.8 kg

DRUGS (1)
  1. MIRENA [Suspect]
     Active Substance: LEVONORGESTREL

REACTIONS (5)
  - Complication associated with device [None]
  - Infertility female [None]
  - Uterine disorder [None]
  - Abortion spontaneous [None]
  - Product communication issue [None]

NARRATIVE: CASE EVENT DATE: 20211031
